FAERS Safety Report 12656086 (Version 4)
Quarter: 2017Q2

REPORT INFORMATION
  Report Type: Spontaneous
  Country: US (occurrence: US)
  Receive Date: 20160816
  Receipt Date: 20170623
  Transmission Date: 20170830
  Serious: No
  Sender: FDA-Public Use
  Company Number: US-ASTRAZENECA-2016SE85581

PATIENT
  Age: 783 Month
  Sex: Female
  Weight: 85.3 kg

DRUGS (2)
  1. LISINOPRIL. [Suspect]
     Active Substance: LISINOPRIL
     Indication: RENAL DISORDER
     Route: 048
  2. BYDUREON [Suspect]
     Active Substance: EXENATIDE
     Indication: TYPE 2 DIABETES MELLITUS
     Route: 058
     Dates: start: 20160728

REACTIONS (9)
  - Nervousness [Unknown]
  - Eye disorder [Unknown]
  - Wrong technique in product usage process [Unknown]
  - Tremor [Unknown]
  - Device defective [Unknown]
  - Protein urine present [Not Recovered/Not Resolved]
  - Dry throat [Unknown]
  - Dysgeusia [Recovered/Resolved]
  - Underdose [Unknown]

NARRATIVE: CASE EVENT DATE: 201608
